FAERS Safety Report 20999633 (Version 1)
Quarter: 2022Q2

REPORT INFORMATION
  Report Type: Spontaneous
  Country: US (occurrence: None)
  Receive Date: 20220623
  Receipt Date: 20220623
  Transmission Date: 20220721
  Serious: No
  Sender: FDA-Public Use
  Company Number: None

PATIENT
  Age: 44 Year
  Sex: Female

DRUGS (19)
  1. CAPECITABINE [Suspect]
     Active Substance: CAPECITABINE
     Indication: Rectosigmoid cancer
     Dosage: FREQUENCY : DAILY;?
     Route: 048
     Dates: start: 202206
  2. CAPECITABINE [Suspect]
     Active Substance: CAPECITABINE
     Indication: Rectosigmoid cancer
     Dosage: FREQUENCY : DAILY;?
     Route: 048
     Dates: start: 202206
  3. ALBUTEROL [Concomitant]
     Active Substance: ALBUTEROL
  4. AVASTIN [Concomitant]
  5. MINERALS\VITAMINS [Concomitant]
     Active Substance: MINERALS\VITAMINS
  6. IBUPROFEN [Concomitant]
  7. IRON [Concomitant]
     Active Substance: IRON
  8. DIPHENHYDRAMINE [Concomitant]
  9. FAMOTIDINE [Concomitant]
  10. GABAPENTIN [Concomitant]
  11. VITAMIN B12 [Concomitant]
     Active Substance: CYANOCOBALAMIN
  12. IBUPROFEN [Concomitant]
     Active Substance: IBUPROFEN
  13. KLONOPIN [Concomitant]
     Active Substance: CLONAZEPAM
  14. LEXAPRO [Concomitant]
     Active Substance: ESCITALOPRAM OXALATE
  15. LOPERAMIDE [Concomitant]
  16. LORAZEPAM [Concomitant]
  17. METAMUCIL [Concomitant]
     Active Substance: PLANTAGO SEED
  18. OXYCODONE [Concomitant]
  19. REXULTIXTAMPZA [Concomitant]

REACTIONS (4)
  - Palmar-plantar erythrodysaesthesia syndrome [None]
  - Fatigue [None]
  - Dysstasia [None]
  - Asthenia [None]
